FAERS Safety Report 17226947 (Version 1)
Quarter: 2020Q1

REPORT INFORMATION
  Report Type: Spontaneous
  Country: FR (occurrence: FR)
  Receive Date: 20200103
  Receipt Date: 20200103
  Transmission Date: 20200409
  Serious: Yes (Hospitalization)
  Sender: FDA-Public Use
  Company Number: FR-TEVA-2019-FR-1160726

PATIENT
  Age: 83 Year
  Sex: Female
  Weight: 88 kg

DRUGS (17)
  1. PYOSTACINE [Suspect]
     Active Substance: PRISTINAMYCIN
     Indication: LUNG DISORDER
     Route: 048
     Dates: start: 20191031, end: 20191102
  2. STILNOX [Concomitant]
     Active Substance: ZOLPIDEM TARTRATE
  3. IKOREL [Concomitant]
     Active Substance: NICORANDIL
  4. LEVOTHYROX [Concomitant]
     Active Substance: LEVOTHYROXINE
  5. DELURSAN [Concomitant]
     Active Substance: URSODIOL
  6. TANGANIL [Concomitant]
     Active Substance: ACETYLLEUCINE
  7. PLAVIX [Concomitant]
     Active Substance: CLOPIDOGREL BISULFATE
  8. TOVIAZ [Concomitant]
     Active Substance: FESOTERODINE FUMARATE
  9. IPERTEN [Concomitant]
     Active Substance: MANIDIPINE
  10. CONTRAMAL [Concomitant]
     Active Substance: TRAMADOL HYDROCHLORIDE
  11. JANUVIA [Concomitant]
     Active Substance: SITAGLIPTIN PHOSPHATE
  12. GLUCOPHAGE [Concomitant]
     Active Substance: METFORMIN HYDROCHLORIDE
  13. OMEPRAZOLE. [Suspect]
     Active Substance: OMEPRAZOLE
     Indication: PRODUCT USED FOR UNKNOWN INDICATION
     Route: 048
     Dates: start: 20191102, end: 20191106
  14. TIORFAN [Suspect]
     Active Substance: RACECADOTRIL
     Indication: DIARRHOEA
     Route: 048
     Dates: start: 20191102, end: 20191106
  15. MIANSERINE (CHLORHYDRATE DE) [Concomitant]
     Active Substance: MIANSERIN HYDROCHLORIDE
  16. NEBIVOLOL. [Concomitant]
     Active Substance: NEBIVOLOL
  17. RIVOTRIL [Concomitant]
     Active Substance: CLONAZEPAM

REACTIONS (1)
  - Fixed eruption [Recovered/Resolved]

NARRATIVE: CASE EVENT DATE: 20191102
